FAERS Safety Report 23094887 (Version 2)
Quarter: 2023Q4

REPORT INFORMATION
  Report Type: Report from Study
  Country: US (occurrence: US)
  Receive Date: 20231023
  Receipt Date: 20231027
  Transmission Date: 20240109
  Serious: Yes (Hospitalization, Other)
  Sender: FDA-Public Use
  Company Number: US-UCBSA-2023046281

PATIENT
  Age: 8 Year
  Sex: Male

DRUGS (3)
  1. FINTEPLA [Suspect]
     Active Substance: FENFLURAMINE
     Indication: Lennox-Gastaut syndrome
     Dosage: 2.2 MILLILITER, 2X/DAY (BID)
     Dates: start: 20230523, end: 2023
  2. FINTEPLA [Suspect]
     Active Substance: FENFLURAMINE
     Dosage: 3 MILLILITER, 2X/DAY (BID)
     Dates: start: 2023, end: 2023
  3. FINTEPLA [Suspect]
     Active Substance: FENFLURAMINE
     Dosage: 4 MILLILITER, 2X/DAY (BID)
     Dates: start: 202306, end: 20231015

REACTIONS (2)
  - Seizure [Recovered/Resolved]
  - Seizure cluster [Recovered/Resolved]

NARRATIVE: CASE EVENT DATE: 20230801
